FAERS Safety Report 4349779-8 (Version None)
Quarter: 2004Q2

REPORT INFORMATION
  Report Type: 
  Country: None (occurrence: None)
  Receive Date: 20040428
  Receipt Date: 20040428
  Transmission Date: 20050107
  Serious: Yes (Other)
  Sender: FDA-Public Use
  Company Number: None

PATIENT
  Sex: Male
  Weight: 78.4723 kg

DRUGS (6)
  1. CRESTOR [Suspect]
     Indication: HYPERLIPIDAEMIA
     Dosage: 5 MG DAILY PO
     Route: 048
     Dates: start: 20040228
  2. ZERIT [Concomitant]
  3. EPIVIR [Concomitant]
  4. ZIAGIN [Concomitant]
  5. REYATAZ [Concomitant]
  6. SEOTUA DS [Concomitant]

REACTIONS (1)
  - GYNAECOMASTIA [None]
